FAERS Safety Report 21907673 (Version 1)
Quarter: 2023Q1

REPORT INFORMATION
  Report Type: Spontaneous
  Country: US (occurrence: US)
  Receive Date: 20230125
  Receipt Date: 20230125
  Transmission Date: 20230417
  Serious: No
  Sender: FDA-Public Use
  Company Number: US-drreddys-SPO/USA/23/0159731

PATIENT
  Age: 74 Year
  Sex: Female

DRUGS (14)
  1. LENALIDOMIDE [Suspect]
     Active Substance: LENALIDOMIDE
     Indication: Plasma cell myeloma
     Dosage: TAKE 1 CAPSULE BY MOUTH EVERY DAY FOR 14 DAYS FOLLOWED BY A 7 DAY BREAK
     Route: 048
     Dates: start: 20221008
  2. LENALIDOMIDE [Suspect]
     Active Substance: LENALIDOMIDE
     Dosage: TAKE 1 CAPSULE BY MOUTH EVERY DAY FOR 14 DAYS FOLLOWED BY A 7 DAY BREAK
     Route: 048
     Dates: start: 20221020
  3. ATORVASTATIN [Concomitant]
     Active Substance: ATORVASTATIN
     Indication: Product used for unknown indication
  4. LORAZEPAM [Concomitant]
     Active Substance: LORAZEPAM
     Indication: Product used for unknown indication
  5. METFORMIN [Concomitant]
     Active Substance: METFORMIN HYDROCHLORIDE
     Indication: Product used for unknown indication
  6. Valsartan Tablets USP 40 mg, 80 mg, 160 mg, and 320 mg [Concomitant]
     Indication: Product used for unknown indication
  7. NAPROXEN [Concomitant]
     Active Substance: NAPROXEN
     Indication: Product used for unknown indication
  8. ALOGLIPTIN B TAB 12.5MG [Concomitant]
     Indication: Product used for unknown indication
  9. AMLODIPINE B TAB 10MG [Concomitant]
     Indication: Product used for unknown indication
  10. ATENOLOL TAB 50MG [Concomitant]
     Indication: Product used for unknown indication
  11. GINKGO BILOB TAB 120MG [Concomitant]
     Indication: Product used for unknown indication
  12. HYDROCHLOROTHIAZIDE [Concomitant]
     Active Substance: HYDROCHLOROTHIAZIDE
     Indication: Product used for unknown indication
  13. VITAMIN B12 [Concomitant]
     Active Substance: CYANOCOBALAMIN
     Indication: Product used for unknown indication
  14. VITAMIN D [Concomitant]
     Active Substance: VITAMIN D NOS
     Indication: Product used for unknown indication

REACTIONS (3)
  - Product administration interrupted [Unknown]
  - Product dose omission issue [Unknown]
  - Product use issue [Unknown]
